FAERS Safety Report 9450055 (Version 1)
Quarter: 2013Q3

REPORT INFORMATION
  Report Type: Spontaneous
  Country: US (occurrence: US)
  Receive Date: 20130809
  Receipt Date: 20130809
  Transmission Date: 20140515
  Serious: No
  Sender: FDA-Public Use
  Company Number: US-PFIZER INC-2013228281

PATIENT
  Sex: Female

DRUGS (1)
  1. LEVOTHYROXINE SODIUM [Suspect]
     Dosage: UNK

REACTIONS (7)
  - Hot flush [Unknown]
  - Hyperhidrosis [Unknown]
  - Temperature regulation disorder [Unknown]
  - Affective disorder [Unknown]
  - Hair disorder [Unknown]
  - Alopecia [Unknown]
  - Drug ineffective [Unknown]
